FAERS Safety Report 7461459-9 (Version None)
Quarter: 2011Q2

REPORT INFORMATION
  Report Type: 
  Country: None (occurrence: None)
  Receive Date: 20110506
  Receipt Date: 20110504
  Transmission Date: 20111010
  Serious: Yes (Other)
  Sender: FDA-Public Use
  Company Number: US-PFIZER INC-2011096351

PATIENT
  Sex: Male
  Weight: 74.376 kg

DRUGS (2)
  1. VANCOMYCIN [Concomitant]
     Dosage: UNK
  2. ZOSYN [Suspect]
     Indication: PNEUMONIA
     Dosage: 3.375 G, 4X/DAY
     Route: 042
     Dates: start: 20110430, end: 20110503

REACTIONS (2)
  - ASPARTATE AMINOTRANSFERASE ABNORMAL [None]
  - ALANINE AMINOTRANSFERASE ABNORMAL [None]
